FAERS Safety Report 7057789-5 (Version None)
Quarter: 2010Q4

REPORT INFORMATION
  Report Type: 
  Country: None (occurrence: None)
  Receive Date: 20101022
  Receipt Date: 20101018
  Transmission Date: 20110411
  Serious: Yes (Life-Threatening, Other)
  Sender: FDA-Public Use
  Company Number: JP-PFIZER INC-2010118907

PATIENT
  Age: 71 Year
  Sex: Male

DRUGS (12)
  1. CHAMPIX [Suspect]
     Indication: SMOKING CESSATION THERAPY
     Dosage: 0.5 MG, 1X/DAY
     Route: 048
     Dates: end: 20100601
  2. CHAMPIX [Suspect]
     Dosage: 1 MG, 2X/DAY
     Route: 048
     Dates: start: 20100602, end: 20100630
  3. AMLODIPINE [Suspect]
     Indication: HYPERTENSION
     Dosage: 5 MG A DAY
     Route: 048
  4. NAUZELIN [Suspect]
     Indication: NAUSEA
     Dosage: 30 MG/DAY
     Route: 048
     Dates: start: 20100602, end: 20100630
  5. GLUFAST [Suspect]
     Indication: DIABETES MELLITUS
     Dosage: 5 MG/DAY
     Route: 048
  6. ACTOS [Suspect]
     Indication: DIABETES MELLITUS
     Dosage: 15 MG/DAY
     Route: 048
  7. LASIX [Suspect]
     Indication: HYPERTENSION
     Dosage: 20 MG/DAY
     Route: 048
  8. ITOROL [Suspect]
     Indication: ANGINA PECTORIS
     Dosage: 40 MG/DAY
     Route: 048
  9. THYRADIN S [Concomitant]
     Indication: THYROID FUNCTION TEST ABNORMAL
     Dosage: 50 UG/DAY
     Route: 048
  10. THYRADIN S [Concomitant]
     Dosage: 25 UG/DAY
     Route: 048
  11. 8-HOUR BAYER [Concomitant]
     Indication: ANGINA PECTORIS
     Dosage: 100 MG/DAY
     Route: 048
  12. GASTER [Concomitant]
     Indication: PROPHYLAXIS
     Dosage: 20 MG/DAY
     Route: 048

REACTIONS (4)
  - BLOOD PRESSURE DECREASED [None]
  - DIABETIC NEPHROPATHY [None]
  - LOSS OF CONSCIOUSNESS [None]
  - ROAD TRAFFIC ACCIDENT [None]
